FAERS Safety Report 7937905-0 (Version None)
Quarter: 2011Q4

REPORT INFORMATION
  Report Type: 
  Country: None (occurrence: None)
  Receive Date: 20111123
  Receipt Date: 20111108
  Transmission Date: 20120403
  Serious: Yes (Other)
  Sender: FDA-Public Use
  Company Number: US-WATSON-2011-18873

PATIENT
  Sex: Female
  Weight: 53.061 kg

DRUGS (3)
  1. FENTANYL-50 [Suspect]
     Dosage: 1 PATCH, Q72H
     Route: 062
     Dates: start: 20110501, end: 20111025
  2. ANTI CONVULSANTS [Concomitant]
     Indication: EPILEPSY
     Dosage: UNK
     Route: 048
  3. FENTANYL-50 [Suspect]
     Indication: BACK PAIN
     Dosage: 1 PATCH, Q72H
     Route: 062
     Dates: start: 20111025

REACTIONS (2)
  - CONVULSION [None]
  - DRUG INEFFECTIVE [None]
